FAERS Safety Report 18865042 (Version 1)
Quarter: 2021Q1

REPORT INFORMATION
  Report Type: Spontaneous
  Country: US (occurrence: US)
  Receive Date: 20210208
  Receipt Date: 20210208
  Transmission Date: 20210420
  Serious: Yes (Hospitalization)
  Sender: FDA-Public Use
  Company Number: None

PATIENT
  Age: 27 Year
  Sex: Female
  Weight: 142.65 kg

DRUGS (6)
  1. MINIPRESS [Concomitant]
     Active Substance: PRAZOSIN HYDROCHLORIDE
  2. IRON [Concomitant]
     Active Substance: IRON
  3. RISPERDAL [Concomitant]
     Active Substance: RISPERIDONE
  4. EQULIUS [Concomitant]
  5. SPRINTEC [Suspect]
     Active Substance: ETHINYL ESTRADIOL\NORGESTIMATE
     Indication: UTERINE HAEMORRHAGE
     Dates: start: 20200706, end: 20210106
  6. PROZAC [Concomitant]
     Active Substance: FLUOXETINE HYDROCHLORIDE

REACTIONS (1)
  - Arterial thrombosis [None]

NARRATIVE: CASE EVENT DATE: 20210106
